FAERS Safety Report 25313992 (Version 1)
Quarter: 2025Q2

REPORT INFORMATION
  Report Type: Spontaneous
  Country: HU (occurrence: HU)
  Receive Date: 20250514
  Receipt Date: 20250514
  Transmission Date: 20250717
  Serious: Yes (Death, Other)
  Sender: ROCHE
  Company Number: HU-ROCHE-10000279148

PATIENT
  Sex: Male

DRUGS (2)
  1. RITUXIMAB [Suspect]
     Active Substance: RITUXIMAB
     Indication: Chronic lymphocytic leukaemia
     Route: 065
  2. IBRUTINIB [Concomitant]
     Active Substance: IBRUTINIB

REACTIONS (16)
  - Drug hypersensitivity [Unknown]
  - Infection [Unknown]
  - Neutropenia [Unknown]
  - Sepsis [Unknown]
  - Cytomegalovirus infection [Not Recovered/Not Resolved]
  - Decreased appetite [Unknown]
  - Fatigue [Unknown]
  - Weight decreased [Unknown]
  - Aplasia pure red cell [Unknown]
  - Feeding disorder [Unknown]
  - Dehydration [Unknown]
  - Myelosuppression [Unknown]
  - Dyspnoea [Unknown]
  - Loss of consciousness [Unknown]
  - Acute myeloid leukaemia [Unknown]
  - Death [Fatal]
